FAERS Safety Report 4735481-7 (Version None)
Quarter: 2005Q3

REPORT INFORMATION
  Report Type: 
  Country: None (occurrence: None)
  Receive Date: 20050805
  Receipt Date: 20050519
  Transmission Date: 20060218
  Serious: Yes (Other)
  Sender: FDA-Public Use
  Company Number: 2005AP03020

PATIENT
  Age: 24625 Day
  Sex: Female

DRUGS (2)
  1. CARBOCAINE AMPUL [Suspect]
     Indication: EPIDURAL ANAESTHESIA
     Route: 008
     Dates: start: 20040601, end: 20040601
  2. CARBOCAINE AMPUL [Suspect]
     Indication: BACK PAIN
     Route: 008
     Dates: start: 20040601, end: 20040601

REACTIONS (7)
  - ABASIA [None]
  - BACK PAIN [None]
  - BRAIN DAMAGE [None]
  - HYPOAESTHESIA [None]
  - PAIN IN EXTREMITY [None]
  - PARAESTHESIA [None]
  - SPEECH DISORDER [None]
